FAERS Safety Report 13044154 (Version 1)
Quarter: 2016Q4

REPORT INFORMATION
  Report Type: Spontaneous
  Country: DE (occurrence: DE)
  Receive Date: 20161220
  Receipt Date: 20161220
  Transmission Date: 20170207
  Serious: Yes (Other)
  Sender: FDA-Public Use
  Company Number: DE-ACCORD-046613

PATIENT
  Age: 73 Year
  Sex: Male

DRUGS (6)
  1. AMINOSALICYLATE CALCIUM/AMINOSALICYLATE CALCIUM ALUMIN/AMINOSALICYLATE SODIUM/AMINOSALICYLIC ACID [Concomitant]
  2. NAFTIDROFURYL [Concomitant]
     Active Substance: NAFRONYL
  3. GEMCITABINE/GEMCITABINE HYDROCHLORIDE [Suspect]
     Active Substance: GEMCITABINE\GEMCITABINE HYDROCHLORIDE
     Indication: LYMPHOMA
  4. BENDAMUSTINE/BENDAMUSTINE HYDROCHLORIDE [Suspect]
     Active Substance: BENDAMUSTINE HYDROCHLORIDE
     Indication: LYMPHOMA
  5. METOPROLOL. [Concomitant]
     Active Substance: METOPROLOL
  6. OXALIPLATIN. [Suspect]
     Active Substance: OXALIPLATIN
     Indication: LYMPHOMA

REACTIONS (2)
  - Leukopenia [Unknown]
  - Off label use [Unknown]
